FAERS Safety Report 11809419 (Version 2)
Quarter: 2016Q3

REPORT INFORMATION
  Report Type: Spontaneous
  Country: ES (occurrence: ES)
  Receive Date: 20151208
  Receipt Date: 20160831
  Transmission Date: 20161109
  Serious: Yes (Other)
  Sender: FDA-Public Use
  Company Number: ES-AMGEN-ESPSP2015127718

PATIENT
  Age: 36 Year
  Sex: Male

DRUGS (6)
  1. UTABON [Concomitant]
     Indication: CATARRH
  2. NASONEX [Concomitant]
     Active Substance: MOMETASONE FUROATE
     Indication: MYRINGITIS BULLOUS
     Dosage: UNK, 2X/DAY
     Route: 045
     Dates: start: 20151117
  3. ENBREL [Suspect]
     Active Substance: ETANERCEPT
     Indication: PSORIASIS
     Dosage: 50 MG, WEEKLY ON TUESDAY
     Route: 058
     Dates: start: 20150915, end: 20151117
  4. UTABON [Concomitant]
     Indication: MYRINGITIS BULLOUS
     Dosage: UNK, 2X/DAY
     Route: 045
     Dates: start: 20151117
  5. NASONEX [Concomitant]
     Active Substance: MOMETASONE FUROATE
     Indication: CATARRH
  6. ENBREL [Suspect]
     Active Substance: ETANERCEPT
     Indication: PSORIATIC ARTHROPATHY

REACTIONS (6)
  - Mite allergy [Unknown]
  - Myringitis [Unknown]
  - Catarrh [Unknown]
  - Pneumonia [Recovered/Resolved with Sequelae]
  - Asthma exercise induced [Unknown]
  - Dust allergy [Unknown]

NARRATIVE: CASE EVENT DATE: 2015
